FAERS Safety Report 20346063 (Version 1)
Quarter: 2022Q1

REPORT INFORMATION
  Report Type: Spontaneous
  Country: FR (occurrence: FR)
  Receive Date: 20220118
  Receipt Date: 20220118
  Transmission Date: 20220424
  Serious: Yes (Hospitalization)
  Sender: FDA-Public Use
  Company Number: None

PATIENT
  Age: 79 Year
  Sex: Female

DRUGS (6)
  1. PANTOPRAZOLE [Suspect]
     Active Substance: PANTOPRAZOLE
     Dosage: 40 MG
     Route: 048
     Dates: start: 20211026
  2. PANTOPRAZOLE [Suspect]
     Active Substance: PANTOPRAZOLE
     Dosage: 8 MG/H WITH 80 MG LOADING DOSE
     Route: 041
     Dates: start: 20211018, end: 20211023
  3. BISOPROLOL [Concomitant]
     Active Substance: BISOPROLOL
     Dosage: 1.25 MG; BISOCE 1.25 MG FILM-COATED TABLETS
     Route: 048
  4. ELIQUIS [Concomitant]
     Active Substance: APIXABAN
     Dosage: 5 MILLIGRAM DAILY; 1/0/1; ELIQUIS 2.5 MG FILM-COATED TABLETS
     Route: 048
  5. PAROXETINE [Concomitant]
     Active Substance: PAROXETINE
     Dosage: 10 MILLIGRAM DAILY; 1/2 CP (I.E. 10 MG) EVERY MORNING; PAROXETINE HYDROCHLORIDE, ANHYDROUS
     Route: 048
  6. FUROSEMIDE [Concomitant]
     Active Substance: FUROSEMIDE
     Dosage: 125 MG
     Route: 048

REACTIONS (1)
  - Myoclonus [Recovered/Resolved]

NARRATIVE: CASE EVENT DATE: 20211026
